FAERS Safety Report 11789016 (Version 2)
Quarter: 2015Q4

REPORT INFORMATION
  Report Type: Spontaneous
  Country: DK (occurrence: DK)
  Receive Date: 20151201
  Receipt Date: 20151201
  Transmission Date: 20160305
  Serious: Yes (Other)
  Sender: FDA-Public Use
  Company Number: DK-AUROBINDO-AUR-APL-2014-08952

PATIENT
  Sex: Male

DRUGS (3)
  1. GABAPENTIN 300MG [Suspect]
     Active Substance: GABAPENTIN
     Dosage: 300 MG, 3 TIMES A DAY
     Route: 065
     Dates: start: 20110530, end: 201109
  2. GABAPENTIN 300MG [Suspect]
     Active Substance: GABAPENTIN
     Indication: ARTHRALGIA
     Dosage: 300 MG, TWO TIMES A DAY
     Route: 065
     Dates: start: 20110513, end: 20110530
  3. AMITRIPTYLINE [Suspect]
     Active Substance: AMITRIPTYLINE
     Indication: NEUROLOGICAL INFECTION
     Dosage: 10 MG, ONCE A DAY
     Route: 065
     Dates: start: 20110506, end: 20110802

REACTIONS (7)
  - Weight increased [Unknown]
  - Parosmia [Unknown]
  - Blindness [Unknown]
  - Dysgeusia [Unknown]
  - Retinal depigmentation [Unknown]
  - Cataract [Recovered/Resolved]
  - Visual impairment [Not Recovered/Not Resolved]

NARRATIVE: CASE EVENT DATE: 2011
